FAERS Safety Report 13707032 (Version 2)
Quarter: 2017Q3

REPORT INFORMATION
  Report Type: Spontaneous
  Country: JP (occurrence: JP)
  Receive Date: 20170630
  Receipt Date: 20170712
  Transmission Date: 20171127
  Serious: Yes (Other)
  Sender: FDA-Public Use
  Company Number: US-ASTRAZENECA-2017SE67029

PATIENT
  Weight: 2 kg

DRUGS (1)
  1. SYNAGIS [Suspect]
     Active Substance: PALIVIZUMAB
     Indication: PREMATURE BABY
     Route: 030
     Dates: start: 20150911, end: 20150911

REACTIONS (2)
  - Respiratory syncytial virus test positive [Unknown]
  - Apnoeic attack [Unknown]

NARRATIVE: CASE EVENT DATE: 20150914
